FAERS Safety Report 17665357 (Version 3)
Quarter: 2020Q2

REPORT INFORMATION
  Report Type: Report from Study
  Country: BE (occurrence: BE)
  Receive Date: 20200414
  Receipt Date: 20200610
  Transmission Date: 20200713
  Serious: Yes (Hospitalization, Other)
  Sender: FDA-Public Use
  Company Number: BE-PFIZER INC-2020148991

PATIENT
  Age: 63 Year
  Sex: Male
  Weight: 65 kg

DRUGS (16)
  1. IDARUBICIN HCL [Suspect]
     Active Substance: IDARUBICIN HYDROCHLORIDE
     Dosage: INDUCTION THERAPY ACCORING TO HOVON-132 PROTOCOL
     Dates: start: 20191007
  2. VORICONAZOL [Concomitant]
     Active Substance: VORICONAZOLE
     Indication: BRONCHOPULMONARY ASPERGILLOSIS
     Dosage: UNK
     Dates: start: 20190817
  3. VALCYTE [Suspect]
     Active Substance: VALGANCICLOVIR HYDROCHLORIDE
     Dosage: UNK, 2X/DAY
     Dates: start: 20200327, end: 20200404
  4. AMBISOME [Concomitant]
     Active Substance: AMPHOTERICIN B
     Indication: BRONCHOPULMONARY ASPERGILLOSIS
     Dosage: UNK
     Dates: start: 20190903
  5. DAUNORUBICIN [Concomitant]
     Active Substance: DAUNORUBICIN
     Dosage: UNK
  6. CYMEVENE [GANCICLOVIR] [Suspect]
     Active Substance: GANCICLOVIR
     Dosage: UNK
     Route: 042
     Dates: start: 20191211, end: 20200213
  7. VALCYTE [Suspect]
     Active Substance: VALGANCICLOVIR HYDROCHLORIDE
     Dosage: UNK, 2X/DAY
     Dates: start: 20200415
  8. MARIBAVIR [Suspect]
     Active Substance: MARIBAVIR
     Indication: CYTOMEGALOVIRUS INFECTION REACTIVATION
     Dosage: 2 X 2 CO/DAY; 2 X 400 MG
     Dates: start: 20200109, end: 20200118
  9. IDARUBICIN HCL [Suspect]
     Active Substance: IDARUBICIN HYDROCHLORIDE
     Indication: ACUTE MYELOID LEUKAEMIA
     Dosage: INDUCTION THERAPY ACCORING TO HOVON-132 PROTOCOL
     Dates: start: 20190731
  10. CYTARABINE. [Suspect]
     Active Substance: CYTARABINE
     Indication: ACUTE MYELOID LEUKAEMIA
     Dosage: INDUCTION THERAPY ACCORDING TO HOVON-132 PROTOCOL
     Dates: start: 20190731
  11. VALCYTE [Suspect]
     Active Substance: VALGANCICLOVIR HYDROCHLORIDE
     Indication: CYTOMEGALOVIRUS INFECTION REACTIVATION
     Dosage: 400 MG, (2X400 MG)
     Dates: start: 20200109, end: 20200118
  12. CYMEVENE [GANCICLOVIR] [Suspect]
     Active Substance: GANCICLOVIR
     Indication: CYTOMEGALOVIRUS INFECTION REACTIVATION
     Dosage: 500 MG, 1X/DAY
     Route: 042
     Dates: start: 20200118, end: 20200226
  13. FLUDARABINE [Concomitant]
     Active Substance: FLUDARABINE PHOSPHATE
     Indication: CHEMOTHERAPY
     Dosage: UNK
     Dates: start: 20191211, end: 20200213
  14. CYTARABINE. [Suspect]
     Active Substance: CYTARABINE
     Dosage: INDUCTION THERAPY ACCORDING TO HOVON-132 PROTOCOL
     Dates: start: 20191007
  15. CYMEVENE [GANCICLOVIR] [Suspect]
     Active Substance: GANCICLOVIR
     Indication: CYTOMEGALOVIRUS INFECTION REACTIVATION
     Dosage: UNK
     Route: 042
     Dates: start: 20190731
  16. VALCYTE [Suspect]
     Active Substance: VALGANCICLOVIR HYDROCHLORIDE
     Dosage: UNK, 2X/DAY
     Dates: start: 20200313, end: 20200326

REACTIONS (12)
  - Drug eruption [Recovered/Resolved]
  - Cytomegalovirus infection reactivation [Recovered/Resolved]
  - Febrile neutropenia [Recovered/Resolved]
  - Cytomegalovirus infection reactivation [Recovered/Resolved]
  - Neurological decompensation [Recovered/Resolved]
  - Bronchopulmonary aspergillosis [Unknown]
  - Cytomegalovirus infection reactivation [Recovered/Resolved]
  - Cytomegalovirus infection reactivation [Recovered/Resolved]
  - Drug eruption [Unknown]
  - Infectious pleural effusion [Unknown]
  - Escherichia sepsis [Unknown]
  - Cytomegalovirus infection reactivation [Unknown]

NARRATIVE: CASE EVENT DATE: 20190731
